FAERS Safety Report 22019284 (Version 2)
Quarter: 2023Q1

REPORT INFORMATION
  Report Type: Spontaneous
  Country: US (occurrence: US)
  Receive Date: 20230222
  Receipt Date: 20230308
  Transmission Date: 20230417
  Serious: No
  Sender: FDA-Public Use
  Company Number: US-GSK-US2023024391

PATIENT
  Sex: Female

DRUGS (1)
  1. BENLYSTA [Suspect]
     Active Substance: BELIMUMAB
     Indication: Product used for unknown indication
     Dosage: UNK
     Dates: start: 20230128

REACTIONS (4)
  - Fatigue [Unknown]
  - Peripheral swelling [Unknown]
  - Fall [Unknown]
  - Product dose omission issue [Not Recovered/Not Resolved]
